APPROVED DRUG PRODUCT: ORTHO-NOVUM 1/50 28
Active Ingredient: MESTRANOL; NORETHINDRONE
Strength: 0.05MG;1MG
Dosage Form/Route: TABLET;ORAL-28
Application: N016709 | Product #001
Applicant: ORTHO MCNEIL JANSSEN PHARMACEUTICALS INC
Approved: Approved Prior to Jan 1, 1982 | RLD: No | RS: No | Type: DISCN